FAERS Safety Report 20558193 (Version 1)
Quarter: 2022Q1

REPORT INFORMATION
  Report Type: Spontaneous
  Country: US (occurrence: US)
  Receive Date: 20220307
  Receipt Date: 20220307
  Transmission Date: 20220423
  Serious: Yes (Other)
  Sender: FDA-Public Use
  Company Number: US-SA-SAC20220302001821

PATIENT
  Age: 57 Year
  Sex: Male

DRUGS (1)
  1. ZANTAC [Suspect]
     Active Substance: RANITIDINE HYDROCHLORIDE
     Indication: Dyspepsia
     Dosage: 300 MG,FREQUENCY: OTHER
     Route: 065
     Dates: start: 201301, end: 201601

REACTIONS (2)
  - Colorectal cancer stage III [Unknown]
  - Renal cancer [Unknown]

NARRATIVE: CASE EVENT DATE: 20151201
